FAERS Safety Report 4900093-9 (Version None)
Quarter: 2006Q1

REPORT INFORMATION
  Report Type: 
  Country: None (occurrence: None)
  Receive Date: 20060203
  Receipt Date: 20060126
  Transmission Date: 20060701
  Serious: Yes (Hospitalization)
  Sender: FDA-Public Use
  Company Number: PHRM2006FR00651

PATIENT
  Age: 71 Year
  Sex: Female
  Weight: 71 kg

DRUGS (13)
  1. HALDOL [Suspect]
     Dosage: 1.12 MG/DAY
     Route: 048
  2. ZOPICLONE [Suspect]
     Dosage: 7.5 MG, QD
     Route: 048
  3. TAREG [Suspect]
     Dosage: 80 MG, QD
     Route: 048
  4. PROTHIADEN [Suspect]
     Dosage: 50 MG, QD
     Route: 048
  5. TRIMEBUTINE [Concomitant]
     Dosage: 200 MG, BID
     Route: 048
  6. INIPOMP [Concomitant]
     Dosage: 20 MG, QD
     Route: 048
  7. CALPEROS D3 [Concomitant]
     Dosage: 2 DF, QD
     Route: 048
  8. SPAGULAX [Concomitant]
     Dosage: 1 DF, BID
     Route: 048
  9. VOLTAREN [Concomitant]
     Route: 061
  10. EFFERALGAN [Concomitant]
     Dosage: 3 G/DAY
     Route: 048
  11. TOPALGIC [Suspect]
     Dosage: 150 MG, BID
     Route: 048
     Dates: end: 20051227
  12. XANAX [Suspect]
     Dosage: 0.5 MG, TID
     Route: 048
  13. SERESTA [Concomitant]
     Dosage: UNK, UNK
     Route: 048

REACTIONS (5)
  - ABDOMINAL PAIN LOWER [None]
  - AGGRESSION [None]
  - AGITATION [None]
  - DELIRIUM [None]
  - SLEEP DISORDER [None]
